FAERS Safety Report 16513908 (Version 1)
Quarter: 2019Q3

REPORT INFORMATION
  Report Type: Spontaneous
  Country: US (occurrence: US)
  Receive Date: 20190701
  Receipt Date: 20190701
  Transmission Date: 20191004
  Serious: No
  Sender: FDA-Public Use
  Company Number: US-ROCHE-2270259

PATIENT
  Sex: Female
  Weight: 59.02 kg

DRUGS (2)
  1. KLONOPIN [Suspect]
     Active Substance: CLONAZEPAM
     Indication: PRODUCT USED FOR UNKNOWN INDICATION
     Route: 065
  2. HYDROSONE [HYDROCORTISONE] [Concomitant]

REACTIONS (10)
  - Asthenia [Unknown]
  - Diarrhoea [Unknown]
  - Lethargy [Unknown]
  - Dry skin [Unknown]
  - Nervous system disorder [Unknown]
  - Balance disorder [Unknown]
  - Rash [Unknown]
  - Cerebral disorder [Unknown]
  - Malaise [Unknown]
  - Cystitis [Unknown]
